FAERS Safety Report 7508744-X (Version None)
Quarter: 2011Q2

REPORT INFORMATION
  Report Type: 
  Country: None (occurrence: None)
  Receive Date: 20110527
  Receipt Date: 20101202
  Transmission Date: 20111010
  Serious: No
  Sender: FDA-Public Use
  Company Number: A0897407A

PATIENT
  Age: 29 Year
  Sex: Female

DRUGS (3)
  1. PULMICORT [Concomitant]
  2. VENTOLIN [Suspect]
     Indication: ASTHMA
     Dosage: 1PUFF TWICE PER DAY
     Route: 055
     Dates: start: 20030701
  3. ADVAIR DISKUS 100/50 [Suspect]
     Indication: ASTHMA
     Dosage: 1PUFF PER DAY
     Route: 055
     Dates: start: 20050101, end: 20060101

REACTIONS (4)
  - HEART RATE INCREASED [None]
  - DYSPNOEA [None]
  - CHEST PAIN [None]
  - INSOMNIA [None]
